FAERS Safety Report 9077866 (Version 1)
Quarter: 2013Q1

REPORT INFORMATION
  Report Type: Report from Study
  Country: US (occurrence: US)
  Receive Date: 20130130
  Receipt Date: 20130130
  Transmission Date: 20140127
  Serious: No
  Sender: FDA-Public Use
  Company Number: US-ABBOTT-12P-163-0974076-00

PATIENT
  Age: 45 Year
  Sex: Female

DRUGS (8)
  1. HUMIRA [Suspect]
     Indication: PSORIATIC ARTHROPATHY
     Dosage: LOADING DOSE
     Dates: start: 20120823
  2. HUMIRA [Suspect]
     Indication: PSORIASIS
  3. ALBUTEROL HFA [Concomitant]
     Indication: EMPHYSEMA
  4. LOSARTAN POTASSIUM [Concomitant]
     Indication: HYPERTENSION
     Dosage: 100MG 1 TABLET DAILY
  5. CYMBALTA [Concomitant]
     Indication: NERVE INJURY
     Dosage: 30MG 1 TABLET DAILY
  6. CYMBALTA [Concomitant]
     Indication: HERPES ZOSTER
  7. HYDROXYZINE [Concomitant]
     Indication: PRURITUS
     Dosage: 25MG 1-2 TABLETS AT BEDTIME
  8. HYDROXYZINE [Concomitant]
     Indication: PSORIASIS

REACTIONS (5)
  - Rhinorrhoea [Not Recovered/Not Resolved]
  - Cough [Not Recovered/Not Resolved]
  - Cough [Not Recovered/Not Resolved]
  - Pain in jaw [Not Recovered/Not Resolved]
  - Toothache [Not Recovered/Not Resolved]
